APPROVED DRUG PRODUCT: NALOXONE HYDROCHLORIDE
Active Ingredient: NALOXONE HYDROCHLORIDE
Strength: 1MG/ML
Dosage Form/Route: INJECTABLE;INJECTION
Application: A072076 | Product #001 | TE Code: AP
Applicant: INTERNATIONAL MEDICATION SYSTEM
Approved: Mar 24, 1988 | RLD: No | RS: Yes | Type: RX